FAERS Safety Report 8294207 (Version 7)
Quarter: 2013Q2

REPORT INFORMATION
  Report Type: Spontaneous
  Country: US (occurrence: None)
  Receive Date: 20111209
  Receipt Date: 20130507
  Transmission Date: 20140414
  Serious: Yes (Other)
  Sender: FDA-Public Use
  Company Number: ADR-2011-11699

PATIENT
  Sex: Female

DRUGS (2)
  1. LIORESAL [Suspect]
     Indication: MUSCLE SPASTICITY
  2. LIORESAL [Suspect]
     Indication: CEREBRAL PALSY

REACTIONS (24)
  - ADHESION [None]
  - MUSCLE SPASTICITY [None]
  - CONDITION AGGRAVATED [None]
  - HEADACHE [None]
  - NERVOUS SYSTEM DISORDER [None]
  - HYPERTONIA [None]
  - CONVULSION [None]
  - DRUG WITHDRAWAL SYNDROME [None]
  - GASTRIC VOLVULUS [None]
  - PERITONEAL NECROSIS [None]
  - INFECTION [None]
  - DEVICE BREAKAGE [None]
  - POSTURE ABNORMAL [None]
  - DEVICE DISLOCATION [None]
  - DRUG TOLERANCE [None]
  - PARAESTHESIA [None]
  - DYSARTHRIA [None]
  - FEELING ABNORMAL [None]
  - ABNORMAL BEHAVIOUR [None]
  - UNDERDOSE [None]
  - MUSCULOSKELETAL STIFFNESS [None]
  - INFUSION SITE CYST [None]
  - PERITONITIS [None]
  - UNEVALUABLE EVENT [None]
